FAERS Safety Report 25202547 (Version 1)
Quarter: 2025Q2

REPORT INFORMATION
  Report Type: Spontaneous
  Country: US (occurrence: None)
  Receive Date: 20250415
  Receipt Date: 20250415
  Transmission Date: 20250717
  Serious: No
  Sender: FDA-CTU
  Company Number: None

PATIENT
  Age: 78 Year
  Sex: Female

DRUGS (1)
  1. VTAMA [Suspect]
     Active Substance: TAPINAROF
     Indication: Psoriasis
     Dosage: FREQUENCY : DAILY;?APPLY A THIN LAYER TO AFFECTED AREA(S) ONCE DAILY AS DIRECTED?
     Route: 061
     Dates: start: 202503

REACTIONS (1)
  - Transient ischaemic attack [None]
